FAERS Safety Report 11878560 (Version 1)
Quarter: 2015Q4

REPORT INFORMATION
  Report Type: Spontaneous
  Country: US (occurrence: None)
  Receive Date: 20151229
  Receipt Date: 20151229
  Transmission Date: 20160305
  Serious: Yes (Hospitalization)
  Sender: FDA-Public Use
  Company Number: None

PATIENT
  Age: 81 Year
  Sex: Male
  Weight: 86.8 kg

DRUGS (1)
  1. WARFARIN [Suspect]
     Active Substance: WARFARIN
     Indication: ATRIAL FIBRILLATION
     Route: 048
     Dates: start: 20110513, end: 20151115

REACTIONS (5)
  - Haemorrhagic stroke [None]
  - Coagulopathy [None]
  - Confusional state [None]
  - Haemorrhage intracranial [None]
  - Speech disorder [None]

NARRATIVE: CASE EVENT DATE: 20151115
